FAERS Safety Report 13026230 (Version 1)
Quarter: 2016Q4

REPORT INFORMATION
  Report Type: Spontaneous
  Country: US (occurrence: US)
  Receive Date: 20161214
  Receipt Date: 20161214
  Transmission Date: 20170207
  Serious: Yes (Other)
  Sender: FDA-Public Use
  Company Number: None

PATIENT
  Age: 67 Year
  Sex: Male
  Weight: 116.68 kg

DRUGS (13)
  1. GLIPIZIDE. [Concomitant]
     Active Substance: GLIPIZIDE
  2. METFORMIN [Concomitant]
     Active Substance: METFORMIN HYDROCHLORIDE
  3. ST JOHN^S WORT [Concomitant]
     Active Substance: ST. JOHN^S WORT
  4. SR. MULTI VITAMIN [Concomitant]
  5. CINNAMON. [Concomitant]
     Active Substance: CINNAMON
  6. RAMIPRIL. [Concomitant]
     Active Substance: RAMIPRIL
  7. PANCREAS-PLUS [Concomitant]
  8. BISOPROLOL FUMARATE. [Concomitant]
     Active Substance: BISOPROLOL FUMARATE
  9. LIPITOR [Concomitant]
     Active Substance: ATORVASTATIN CALCIUM
  10. ASPIRIN. [Suspect]
     Active Substance: ASPIRIN
  11. JANUVIA [Concomitant]
     Active Substance: SITAGLIPTIN PHOSPHATE
  12. HERBAL PRODUCT [Concomitant]
  13. INVOKANA [Suspect]
     Active Substance: CANAGLIFLOZIN
     Indication: TYPE 2 DIABETES MELLITUS
     Dosage: ?          QUANTITY:I ^93 II;?
     Route: 048
     Dates: start: 201507

REACTIONS (1)
  - Tooth fracture [None]

NARRATIVE: CASE EVENT DATE: 201608
